FAERS Safety Report 11270149 (Version 3)
Quarter: 2015Q3

REPORT INFORMATION
  Report Type: Spontaneous
  Country: US (occurrence: US)
  Receive Date: 20150714
  Receipt Date: 20150908
  Transmission Date: 20151125
  Serious: Yes (Other)
  Sender: FDA-Public Use
  Company Number: US-GLAXOSMITHKLINE-US2015GSK100343

PATIENT
  Sex: Female

DRUGS (1)
  1. LAMICTAL [Suspect]
     Active Substance: LAMOTRIGINE
     Indication: SEIZURE
     Dosage: 250 MG, BID
     Route: 048
     Dates: start: 2007

REACTIONS (7)
  - Drug administration error [Unknown]
  - Rash [Recovered/Resolved]
  - Memory impairment [Unknown]
  - Seizure [Unknown]
  - Loss of consciousness [Unknown]
  - Disorientation [Unknown]
  - Somnolence [Unknown]
